FAERS Safety Report 6625071-3 (Version None)
Quarter: 2010Q1

REPORT INFORMATION
  Report Type: 
  Country: None (occurrence: None)
  Receive Date: 20100223
  Receipt Date: 20091027
  Transmission Date: 20100710
  Serious: No
  Sender: FDA-Public Use
  Company Number: 8053768

PATIENT
  Sex: Male

DRUGS (1)
  1. CERTOLIZUMAB PEGOL             (UCB, INC) [Suspect]
     Dosage: 2 SUBCUTANEOUS
     Route: 058
     Dates: start: 20090801, end: 20090101

REACTIONS (7)
  - DIZZINESS [None]
  - DYSPNOEA [None]
  - FATIGUE [None]
  - HYPOAESTHESIA ORAL [None]
  - MYALGIA [None]
  - PARAESTHESIA ORAL [None]
  - SENSORY DISTURBANCE [None]
